FAERS Safety Report 25878003 (Version 1)
Quarter: 2025Q4

REPORT INFORMATION
  Report Type: Report from Study
  Country: PH (occurrence: PH)
  Receive Date: 20251003
  Receipt Date: 20251003
  Transmission Date: 20260117
  Serious: Yes (Hospitalization)
  Sender: OTSUKA
  Company Number: PH-MMM-Otsuka-8F5BMOHV

PATIENT

DRUGS (1)
  1. TOLVAPTAN [Suspect]
     Active Substance: TOLVAPTAN
     Indication: Blood sodium decreased
     Dosage: 0.5 DF, QOD (15 MG HALF TABLET EVERY MONDAY, WEDNESDAY, FRIDAY AND SUNDAY)
     Dates: start: 2024

REACTIONS (4)
  - Blood sodium decreased [Unknown]
  - Inappropriate schedule of product administration [Unknown]
  - Wrong technique in product usage process [Unknown]
  - Underdose [Unknown]

NARRATIVE: CASE EVENT DATE: 20250924
